FAERS Safety Report 16052359 (Version 2)
Quarter: 2019Q1

REPORT INFORMATION
  Report Type: Spontaneous
  Country: JP (occurrence: JP)
  Receive Date: 20190308
  Receipt Date: 20190319
  Transmission Date: 20190418
  Serious: Yes (Life-Threatening, Hospitalization)
  Sender: FDA-Public Use
  Company Number: JP-009507513-1901JPN011881

PATIENT
  Age: 68 Year
  Sex: Male

DRUGS (22)
  1. SODIUM GUALENATE [Concomitant]
     Active Substance: SODIUM GUALENATE
     Dosage: ADEQUATE DOSE
     Route: 047
  2. CYTOTEC [Concomitant]
     Active Substance: MISOPROSTOL
     Dosage: 200 MICROGRAM PER DAY AFTER BREAKFAST AND SUPPER
     Route: 048
     Dates: start: 20100604
  3. RINLAXER [Concomitant]
     Active Substance: CHLORPHENESIN CARBAMATE
     Dosage: 750 MILLIGRAM PER DAY AFTER EACH MEAL
     Route: 048
     Dates: start: 20100604
  4. EURAX [Concomitant]
     Active Substance: CROTAMITON
     Dosage: UNK
     Route: 061
  5. EDIROL [Concomitant]
     Active Substance: ELDECALCITOL
     Dosage: 0.75 MICROGRAM PER DAY AFTER BREAKFAST
     Route: 048
     Dates: start: 20160219
  6. REBAMIPIDE [Concomitant]
     Active Substance: REBAMIPIDE
     Indication: PAIN
     Dosage: 100 MILLIGRAM PER DOSE
     Route: 048
     Dates: start: 20100604
  7. LANSOPRAZOLE. [Concomitant]
     Active Substance: LANSOPRAZOLE
     Dosage: 15 MILLIGRAM PER DAY AFTER BREAKFAST
     Route: 048
  8. BETAMETHASONE VALERATE (+) GENTAMICIN SULFATE [Concomitant]
     Dosage: UNK
     Route: 061
  9. TALION OD [Concomitant]
     Active Substance: BEPOTASTINE BESILATE
     Dosage: 20 MILLIGRAM PER DAY AFTER BREAKFAST AND SUPPER
     Route: 048
     Dates: start: 20141205
  10. FEBURIC [Concomitant]
     Active Substance: FEBUXOSTAT
     Dosage: 20 MILLIGRAM PER DAY AFTER BREAKFAST
     Route: 048
     Dates: start: 20160902
  11. INDOMETHACIN. [Concomitant]
     Active Substance: INDOMETHACIN
     Dosage: UNK
     Route: 061
  12. PROMETHAZINE HYDROCHLORIDE. [Concomitant]
     Active Substance: PROMETHAZINE HYDROCHLORIDE
     Dosage: 6 TABLETS PER DAY AFTER EACH MEAL
     Route: 048
  13. HEPARINOID [Concomitant]
     Active Substance: CHONDROITIN SULFATE (BOVINE)
     Route: 062
  14. CELECOXIB. [Concomitant]
     Active Substance: CELECOXIB
     Dosage: 200 MILLIGRAM PER DAY AFTER BREAKFAST AND SUPPER
     Route: 048
     Dates: start: 20130802
  15. BROTIZOLAM [Concomitant]
     Active Substance: BROTIZOLAM
     Dosage: 0.25 MILLIGRAM PER DAY AT BEDTIME
     Route: 048
     Dates: start: 20120810
  16. SODIUM FERROUS CITRATE [Concomitant]
     Active Substance: SODIUM FERROUS CITRATE
     Dosage: 50 MILLIGRAM PER DAY AFTER BREAKFAST
     Route: 048
  17. ALENDRONATE SODIUM. [Suspect]
     Active Substance: ALENDRONATE SODIUM
     Indication: OSTEOPOROSIS
     Dosage: 35 MILLIGRAM PER WEEK
     Route: 048
     Dates: start: 20181107, end: 20181224
  18. DICLOFENAC SODIUM. [Concomitant]
     Active Substance: DICLOFENAC SODIUM
     Indication: PAIN
     Dosage: 25 MILLIGRAM PER DOSE
     Route: 048
     Dates: start: 20100604
  19. KETOPROFEN. [Concomitant]
     Active Substance: KETOPROFEN
     Dosage: UNK
     Route: 061
  20. FELBINAC [Concomitant]
     Active Substance: FELBINAC
     Dosage: UNK
     Route: 061
  21. BROTIZOLAM [Concomitant]
     Active Substance: BROTIZOLAM
     Indication: INSOMNIA
     Dosage: 0.25 MILLIGRAM PER DOSE
     Route: 048
  22. DEQUALINIUM CHLORIDE [Concomitant]
     Active Substance: DEQUALINIUM CHLORIDE
     Dosage: UNK
     Route: 048

REACTIONS (1)
  - Hypoglycaemia [Recovered/Resolved]

NARRATIVE: CASE EVENT DATE: 20181224
